FAERS Safety Report 8814818 (Version 2)
Quarter: 2014Q3

REPORT INFORMATION
  Report Type: Report from Study
  Country: US (occurrence: US)
  Receive Date: 20120928
  Receipt Date: 20140903
  Transmission Date: 20150326
  Serious: Yes (Hospitalization)
  Sender: FDA-Public Use
  Company Number: US-ROCHE-1123615

PATIENT
  Age: 49 Year
  Sex: Female
  Weight: 85 kg

DRUGS (10)
  1. ABRAXANE [Concomitant]
     Active Substance: PACLITAXEL
     Route: 065
     Dates: start: 20051202
  2. ABRAXANE [Concomitant]
     Active Substance: PACLITAXEL
     Route: 065
     Dates: end: 20051111
  3. ABRAXANE [Concomitant]
     Active Substance: PACLITAXEL
     Route: 065
     Dates: start: 200601
  4. NEUPOGEN [Concomitant]
     Active Substance: FILGRASTIM
  5. AVASTIN [Suspect]
     Active Substance: BEVACIZUMAB
     Indication: BREAST CANCER FEMALE
     Route: 065
     Dates: start: 20051202
  6. HERCEPTIN [Suspect]
     Active Substance: TRASTUZUMAB
     Indication: PRODUCT USED FOR UNKNOWN INDICATION
     Route: 065
     Dates: start: 200508
  7. AVASTIN [Suspect]
     Active Substance: BEVACIZUMAB
     Indication: BREAST CANCER METASTATIC
     Route: 065
     Dates: start: 200601
  8. GEMZAR [Concomitant]
     Active Substance: GEMCITABINE HYDROCHLORIDE
     Route: 065
     Dates: start: 200508
  9. AVASTIN [Suspect]
     Active Substance: BEVACIZUMAB
     Route: 042
  10. NEULASTA [Concomitant]
     Active Substance: PEGFILGRASTIM

REACTIONS (13)
  - Drug intolerance [Unknown]
  - Dysphagia [Unknown]
  - Asthenia [Unknown]
  - Dysuria [Unknown]
  - Fatigue [Unknown]
  - Weight decreased [Unknown]
  - Bone pain [Unknown]
  - Pyrexia [Unknown]
  - Pain [Unknown]
  - Headache [Unknown]
  - Off label use [Unknown]
  - Ageusia [Unknown]
  - Metastases to spine [Unknown]

NARRATIVE: CASE EVENT DATE: 20060206
